FAERS Safety Report 18182773 (Version 3)
Quarter: 2020Q3

REPORT INFORMATION
  Report Type: Report from Study
  Country: CO (occurrence: CO)
  Receive Date: 20200821
  Receipt Date: 20200828
  Transmission Date: 20201103
  Serious: Yes (Other)
  Sender: FDA-Public Use
  Company Number: CO-BRISTOL-MYERS SQUIBB COMPANY-BMS-2020-045127

PATIENT
  Age: 61 Year
  Sex: Male
  Weight: 58 kg

DRUGS (1)
  1. NIVOLUMAB [Suspect]
     Active Substance: NIVOLUMAB
     Indication: LUNG NEOPLASM MALIGNANT
     Dosage: 180 MILLIGRAM, Q2WK
     Route: 042
     Dates: start: 20200618

REACTIONS (10)
  - Colitis [Recovering/Resolving]
  - General physical health deterioration [Recovering/Resolving]
  - Abdominal pain [Recovering/Resolving]
  - Prescribed overdose [Recovered/Resolved]
  - Psychiatric symptom [Recovering/Resolving]
  - Hyperhidrosis [Recovering/Resolving]
  - Chest pain [Recovering/Resolving]
  - Constipation [Recovering/Resolving]
  - Rash [Recovering/Resolving]
  - Asthenia [Unknown]

NARRATIVE: CASE EVENT DATE: 20200619
